FAERS Safety Report 5278142-0 (Version None)
Quarter: 2007Q1

REPORT INFORMATION
  Report Type: 
  Country: None (occurrence: None)
  Receive Date: 20061213
  Receipt Date: 20060321
  Transmission Date: 20070707
  Serious: No
  Sender: FDA-Public Use
  Company Number: 2006UW04912

PATIENT
  Age: 63 Year
  Sex: Female
  Weight: 67.131 kg

DRUGS (12)
  1. SEROQUEL [Suspect]
     Indication: BIPOLAR DISORDER
     Dosage: 200 MG DAILY PO
     Route: 048
     Dates: start: 20030101
  2. CENTRUM SILVER [Concomitant]
  3. ZETIA [Concomitant]
  4. DEPAKOTE [Concomitant]
  5. FLUPHENAZINE [Concomitant]
  6. ARTANE [Concomitant]
  7. ASPIRIN [Concomitant]
  8. PROTONIX [Concomitant]
  9. GLIPIZIDE [Concomitant]
  10. ZOCOR [Concomitant]
  11. LEVOTHYROXINE SODIUM [Concomitant]
  12. COZAAR [Concomitant]

REACTIONS (2)
  - DYSKINESIA [None]
  - OSTEOPOROSIS [None]
